FAERS Safety Report 7741368-8 (Version None)
Quarter: 2011Q3

REPORT INFORMATION
  Report Type: 
  Country: None (occurrence: None)
  Receive Date: 20110909
  Receipt Date: 20110908
  Transmission Date: 20111222
  Serious: No
  Sender: FDA-Public Use
  Company Number: US-PFIZER INC-2011211662

PATIENT
  Sex: Female

DRUGS (1)
  1. ADVIL LIQUI-GELS [Suspect]
     Dosage: 2 IBUPROFEN
     Dates: start: 20110908

REACTIONS (3)
  - NAUSEA [None]
  - DYSPHAGIA [None]
  - FEELING HOT [None]
